FAERS Safety Report 6879034-3 (Version None)
Quarter: 2010Q3

REPORT INFORMATION
  Report Type: 
  Country: None (occurrence: None)
  Receive Date: 20100728
  Receipt Date: 20100713
  Transmission Date: 20110219
  Serious: Yes (Other)
  Sender: FDA-Public Use
  Company Number: PHHY2010US26210

PATIENT
  Sex: Male
  Weight: 108.84 kg

DRUGS (8)
  1. ZOMETA [Suspect]
     Indication: METASTASES TO BONE
     Dosage: 4 MG, MONTHLY
     Route: 042
     Dates: start: 20100416, end: 20100416
  2. NEXIUM [Concomitant]
     Dosage: UNK
  3. METOPROLOL [Concomitant]
     Dosage: 10 MG, DAILY
     Route: 048
  4. DIGOXIN [Concomitant]
     Dosage: 0.125 MG DAILY
     Route: 048
  5. ENALAPRIL MALEATE [Concomitant]
     Dosage: 10 MG
     Route: 048
  6. DEGARELIX [Concomitant]
     Dosage: UNK
     Dates: start: 20100416
  7. VITAMIN D [Concomitant]
     Dosage: UNK
  8. CALCIUM [Concomitant]
     Dosage: UNK

REACTIONS (5)
  - EYE PAIN [None]
  - EYE SWELLING [None]
  - HEADACHE [None]
  - ORBITAL PSEUDOTUMOUR [None]
  - SCLERITIS [None]
